FAERS Safety Report 4963231-8 (Version None)
Quarter: 2006Q2

REPORT INFORMATION
  Report Type: 
  Country: None (occurrence: None)
  Receive Date: 20060405
  Receipt Date: 20060223
  Transmission Date: 20061013
  Serious: Yes (Hospitalization)
  Sender: FDA-Public Use
  Company Number: US-MERCK-0602USA05434

PATIENT
  Age: 66 Year
  Sex: Female
  Weight: 75 kg

DRUGS (10)
  1. VIOXX [Suspect]
     Indication: ARTHRITIS
     Route: 048
     Dates: start: 20010101, end: 20011226
  2. FLUOXETINE [Concomitant]
     Route: 065
  3. ACCOLATE [Concomitant]
     Route: 065
  4. CLIDINIUM BROMIDE [Concomitant]
     Route: 065
  5. PROVENTIL [Concomitant]
     Route: 065
  6. PRAVACHOL [Concomitant]
     Route: 065
  7. DILACOR XR [Concomitant]
     Route: 065
  8. DYAZIDE [Concomitant]
     Route: 065
  9. PROZAC [Concomitant]
     Route: 048
  10. XANAX [Concomitant]
     Route: 048

REACTIONS (6)
  - ANAEMIA [None]
  - ANGINA UNSTABLE [None]
  - MYOCARDIAL INFARCTION [None]
  - RENAL FAILURE [None]
  - RENAL IMPAIRMENT [None]
  - VENTRICULAR TACHYCARDIA [None]
